FAERS Safety Report 23736648 (Version 1)
Quarter: 2024Q2

REPORT INFORMATION
  Report Type: Spontaneous
  Country: AU (occurrence: AU)
  Receive Date: 20240412
  Receipt Date: 20240412
  Transmission Date: 20240716
  Serious: Yes (Other)
  Sender: FDA-Public Use
  Company Number: AU-BAYER-2024A053287

PATIENT
  Age: 26 Year
  Sex: Female
  Weight: 90 kg

DRUGS (1)
  1. PRIMOVIST [Suspect]
     Active Substance: GADOXETATE DISODIUM
     Indication: Magnetic resonance imaging
     Dosage: UNK UNK, ONCE
     Route: 042
     Dates: start: 20240410, end: 20240410

REACTIONS (4)
  - Vomiting [Recovered/Resolved]
  - Pruritus [Recovered/Resolved]
  - Peripheral coldness [Recovered/Resolved]
  - Feeling hot [Recovered/Resolved]

NARRATIVE: CASE EVENT DATE: 20240410
